FAERS Safety Report 11184163 (Version 9)
Quarter: 2015Q4

REPORT INFORMATION
  Report Type: Spontaneous
  Country: US (occurrence: US)
  Receive Date: 20150612
  Receipt Date: 20151002
  Transmission Date: 20160304
  Serious: No
  Sender: FDA-Public Use
  Company Number: US-PFIZER INC-2015193704

PATIENT
  Age: 65 Year
  Sex: Female

DRUGS (11)
  1. OXYCODONE [Suspect]
     Active Substance: OXYCODONE
     Dosage: 10 MG, UNK
  2. KEFLEX [Suspect]
     Active Substance: CEPHALEXIN
     Dosage: 250 MG, UNK
  3. BACTRIM [Suspect]
     Active Substance: SULFAMETHOXAZOLE\TRIMETHOPRIM
     Dosage: UNK (400 MG SULFAMETHOXAZOLE-800MG TRIMETHOPRIM)
  4. OXYCODONE HYDROCHLORIDE. [Suspect]
     Active Substance: OXYCODONE HYDROCHLORIDE
     Dosage: 10 MG, UNK
  5. ACTEMRA [Suspect]
     Active Substance: TOCILIZUMAB
     Indication: RHEUMATOID ARTHRITIS
     Dosage: 162 MG, WEEKLY
  6. OXYCONTIN [Suspect]
     Active Substance: OXYCODONE HYDROCHLORIDE
     Dosage: 10 MG, UNK
  7. ENBREL [Suspect]
     Active Substance: ETANERCEPT
     Dosage: UNK (25 MG/0.5 ML)
  8. AZITHROMYCIN [Suspect]
     Active Substance: AZITHROMYCIN ANHYDROUS
     Dosage: UNK
  9. CODEINE SULFATE. [Suspect]
     Active Substance: CODEINE SULFATE
     Dosage: 15 MG, UNK
  10. CHLOROQUINE. [Suspect]
     Active Substance: CHLOROQUINE
     Dosage: UNK
  11. REGLAN [Suspect]
     Active Substance: METOCLOPRAMIDE HYDROCHLORIDE
     Dosage: 10 MG, UNK

REACTIONS (2)
  - Liver function test abnormal [Recovered/Resolved]
  - Drug hypersensitivity [Recovered/Resolved]

NARRATIVE: CASE EVENT DATE: 201407
